FAERS Safety Report 7034635-7 (Version None)
Quarter: 2010Q4

REPORT INFORMATION
  Report Type: 
  Country: None (occurrence: None)
  Receive Date: 20101008
  Receipt Date: 20100928
  Transmission Date: 20110411
  Serious: Yes (Hospitalization)
  Sender: FDA-Public Use
  Company Number: DE-ELI_LILLY_AND_COMPANY-DE201003005059

PATIENT
  Sex: Male
  Weight: 75 kg

DRUGS (13)
  1. PEMETREXED [Suspect]
     Indication: NON-SMALL CELL LUNG CANCER
     Dosage: 500 MG/M2, ON DAY 1 EVERY 21 DAYS
     Route: 042
     Dates: start: 20100208
  2. CISPLATIN [Suspect]
     Indication: NON-SMALL CELL LUNG CANCER
     Dosage: 75 MG/M2, ON DAY 1 EVERY 21 DAYS
     Route: 042
     Dates: start: 20100208
  3. FOLIC ACID [Concomitant]
     Indication: PROPHYLAXIS
     Dates: start: 20100128
  4. VITAMIN B-12 [Concomitant]
     Indication: PROPHYLAXIS
     Dates: start: 20100128
  5. DEXAMETHASONE [Concomitant]
     Indication: PROPHYLAXIS
     Dates: start: 20100207, end: 20100209
  6. PANTOPRAZOLE SODIUM [Concomitant]
     Indication: PROPHYLAXIS
  7. ALLOPURINOL [Concomitant]
     Indication: PROPHYLAXIS
  8. METOPROLOL TARTRATE [Concomitant]
     Indication: HYPERTENSION
  9. RAMIPRIL [Concomitant]
     Indication: HYPERTENSION
  10. NOVALGIN [Concomitant]
     Indication: TUMOUR PAIN
  11. TARGIN [Concomitant]
     Indication: TUMOUR PAIN
  12. METOCLOPRAMIDE [Concomitant]
     Indication: PROPHYLAXIS
  13. HALDOL [Concomitant]
     Indication: HICCUPS
     Dates: start: 20100208

REACTIONS (1)
  - OESOPHAGEAL STENOSIS [None]
